FAERS Safety Report 11431557 (Version 1)
Quarter: 2015Q3

REPORT INFORMATION
  Report Type: Spontaneous
  Country: US (occurrence: US)
  Receive Date: 20150828
  Receipt Date: 20150828
  Transmission Date: 20151125
  Serious: Yes (Other)
  Sender: FDA-Public Use
  Company Number: US-PFIZER INC-2015274192

PATIENT
  Age: 85 Year
  Sex: Female
  Weight: 62 kg

DRUGS (1)
  1. PREMARIN [Suspect]
     Active Substance: ESTROGENS, CONJUGATED
     Indication: VAGINAL HAEMORRHAGE
     Dosage: UNK, 2X/WEEK (1/4TH TO 1/2 APPLICATOR FULL)

REACTIONS (4)
  - Product use issue [Unknown]
  - Hypertension [Unknown]
  - Diabetes mellitus [Unknown]
  - Gastroenteritis [Unknown]
